FAERS Safety Report 9642073 (Version 1)
Quarter: 2013Q4

REPORT INFORMATION
  Report Type: Spontaneous
  Country: GB (occurrence: GB)
  Receive Date: 20131023
  Receipt Date: 20131023
  Transmission Date: 20140711
  Serious: Yes (Hospitalization)
  Sender: FDA-Public Use
  Company Number: PHHY2013GB115575

PATIENT
  Age: 69 Year
  Sex: Male

DRUGS (8)
  1. DIGOXIN [Suspect]
     Indication: ATRIAL FIBRILLATION
     Dosage: 250 UG, QD
     Dates: start: 20120409, end: 20120413
  2. TRIMETHOPRIM [Suspect]
     Indication: URINARY TRACT INFECTION
     Dosage: 200 MG, BID
     Dates: start: 20120401
  3. WARFARIN SODIUM [Suspect]
  4. RAMIPRIL [Suspect]
  5. CIPROFLOXACIN [Suspect]
     Indication: URINARY TRACT INFECTION
     Dosage: 500 MG, BID
     Dates: start: 20120405
  6. ATORVASTATIN [Concomitant]
  7. FINASTERIDE [Concomitant]
  8. ATENOLOL [Concomitant]

REACTIONS (5)
  - Renal failure acute [Recovered/Resolved]
  - International normalised ratio increased [Recovered/Resolved]
  - Toxicity to various agents [Recovered/Resolved]
  - Nausea [Unknown]
  - Vomiting [Unknown]
